FAERS Safety Report 10381596 (Version 1)
Quarter: 2014Q3

REPORT INFORMATION
  Report Type: Spontaneous
  Country: IT (occurrence: IT)
  Receive Date: 20140813
  Receipt Date: 20140813
  Transmission Date: 20150326
  Serious: Yes (Other)
  Sender: FDA-Public Use
  Company Number: IT-BAXTER-2014BAX047427

PATIENT
  Age: 65 Year
  Sex: Male

DRUGS (1)
  1. KIOVIG [Suspect]
     Active Substance: HUMAN IMMUNOGLOBULIN G
     Indication: GUILLAIN-BARRE SYNDROME
     Dosage: 2 G/KG
     Route: 042

REACTIONS (3)
  - No therapeutic response [Not Recovered/Not Resolved]
  - Neurological decompensation [Recovering/Resolving]
  - Quadriplegia [Recovering/Resolving]
